FAERS Safety Report 7945242-3 (Version None)
Quarter: 2011Q4

REPORT INFORMATION
  Report Type: 
  Country: None (occurrence: None)
  Receive Date: 20111129
  Receipt Date: 20110725
  Transmission Date: 20120403
  Serious: No
  Sender: FDA-Public Use
  Company Number: US-GLAXOSMITHKLINE-A0938186A

PATIENT
  Age: 57 Year
  Sex: Female

DRUGS (2)
  1. ACCOLATE [Concomitant]
  2. FLOVENT [Suspect]
     Indication: ASTHMA
     Dosage: 1PUFF TWICE PER DAY
     Route: 055
     Dates: start: 20110613

REACTIONS (5)
  - GINGIVITIS [None]
  - ORAL DISCOMFORT [None]
  - GINGIVAL PAIN [None]
  - ORAL INFECTION [None]
  - TOOTHACHE [None]
